FAERS Safety Report 7356405-2 (Version None)
Quarter: 2011Q1

REPORT INFORMATION
  Report Type: 
  Country: None (occurrence: None)
  Receive Date: 20110316
  Receipt Date: 20110310
  Transmission Date: 20110831
  Serious: Yes (Hospitalization)
  Sender: FDA-Public Use
  Company Number: DE-ELI_LILLY_AND_COMPANY-DE201103003086

PATIENT
  Sex: Female

DRUGS (3)
  1. CORTISONE [Concomitant]
  2. BYETTA [Suspect]
     Indication: DIABETES MELLITUS
     Dosage: 10 UG, UNK
     Route: 058
     Dates: start: 20101001
  3. ANTIARRHYTHMICS, CLASS I AND III [Concomitant]

REACTIONS (2)
  - BLOOD GLUCOSE INCREASED [None]
  - SINUSITIS [None]
